FAERS Safety Report 16504867 (Version 1)
Quarter: 2019Q3

REPORT INFORMATION
  Report Type: Spontaneous
  Country: US (occurrence: US)
  Receive Date: 20190701
  Receipt Date: 20190701
  Transmission Date: 20191004
  Serious: No
  Sender: FDA-Public Use
  Company Number: US-PFM-2018-13340

PATIENT

DRUGS (4)
  1. HEMANGEOL [Suspect]
     Active Substance: PROPRANOLOL HYDROCHLORIDE
     Indication: INFANTILE HAEMANGIOMA
     Dosage: 2.4 ML, BID (2/DAY)
     Route: 048
     Dates: start: 20171208
  2. HEMANGEOL [Suspect]
     Active Substance: PROPRANOLOL HYDROCHLORIDE
     Dosage: 3.6 ML, QD (1/DAY)
     Route: 048
  3. TIMOLOL. [Concomitant]
     Active Substance: TIMOLOL
     Indication: PRODUCT USED FOR UNKNOWN INDICATION
     Dosage: UNK
  4. HEMANGEOL [Suspect]
     Active Substance: PROPRANOLOL HYDROCHLORIDE
     Dosage: 3.6 ML, BID (2/DAY), WITH FEEDINGS
     Route: 048
     Dates: start: 201806

REACTIONS (5)
  - Malaise [Recovered/Resolved]
  - Off label use [Unknown]
  - Product use issue [Unknown]
  - Drug titration error [Unknown]
  - Intentional product misuse [Unknown]
